FAERS Safety Report 13227789 (Version 2)
Quarter: 2017Q1

REPORT INFORMATION
  Report Type: Report from Study
  Country: US (occurrence: US)
  Receive Date: 20170213
  Receipt Date: 20170223
  Transmission Date: 20170428
  Serious: Yes (Hospitalization)
  Sender: FDA-Public Use
  Company Number: US-B.I. PHARMACEUTICALS,INC./RIDGEFIELD-2017-BI-006946

PATIENT
  Sex: Male

DRUGS (2)
  1. VORICONAZOLE. [Concomitant]
     Active Substance: VORICONAZOLE
     Indication: ANTIFUNGAL TREATMENT
     Route: 065
  2. OFEV [Suspect]
     Active Substance: NINTEDANIB
     Indication: IDIOPATHIC PULMONARY FIBROSIS
     Route: 048
     Dates: start: 20161220

REACTIONS (8)
  - Diarrhoea [Unknown]
  - Cough [Unknown]
  - Pain in extremity [Unknown]
  - Dyspnoea [Unknown]
  - Rectal haemorrhage [Unknown]
  - Limb mass [Unknown]
  - Diverticulum [Unknown]
  - Dizziness [Unknown]
